FAERS Safety Report 7728428-2 (Version None)
Quarter: 2011Q3

REPORT INFORMATION
  Report Type: 
  Country: None (occurrence: None)
  Receive Date: 20110905
  Receipt Date: 20110827
  Transmission Date: 20111222
  Serious: Yes (Other)
  Sender: FDA-Public Use
  Company Number: US-PFIZER INC-2011199762

PATIENT
  Sex: Male
  Weight: 61.338 kg

DRUGS (9)
  1. OXYCODONE [Concomitant]
     Indication: ARTHRALGIA
  2. SYNTHROID [Concomitant]
     Indication: HYPOPARATHYROIDISM
     Dosage: UNK
     Dates: start: 20100101
  3. COMPAZINE [Concomitant]
     Indication: NAUSEA
     Dosage: UNK
     Dates: start: 20110812
  4. OMEPRAZOLE [Concomitant]
     Indication: PROPHYLAXIS
     Dosage: UNK
     Dates: start: 20110809
  5. OXYCONTIN [Concomitant]
     Indication: BONE PAIN
     Dosage: UNK
     Dates: start: 20110809
  6. PF-02341066 [Suspect]
     Indication: NEUROBLASTOMA
     Dosage: 250 MG, 2X/DAY CONTINUOUS
     Route: 048
     Dates: start: 20110811
  7. OXYCONTIN [Concomitant]
     Indication: ARTHRALGIA
  8. ONDANSETRON [Concomitant]
     Indication: NAUSEA
     Dosage: UNK
     Dates: start: 20110812
  9. OXYCODONE [Concomitant]
     Indication: BONE PAIN
     Dosage: UNK
     Dates: start: 20110809

REACTIONS (1)
  - BLOOD BILIRUBIN INCREASED [None]
